FAERS Safety Report 15619412 (Version 1)
Quarter: 2018Q4

REPORT INFORMATION
  Report Type: Report from Study
  Country: GB (occurrence: GB)
  Receive Date: 20181115
  Receipt Date: 20181115
  Transmission Date: 20190205
  Serious: Yes (Hospitalization, Other)
  Sender: FDA-Public Use
  Company Number: GB-ACCORD-092332

PATIENT
  Age: 69 Year
  Sex: Female

DRUGS (9)
  1. METHOTREXATE. [Suspect]
     Active Substance: METHOTREXATE
     Indication: RHEUMATOID ARTHRITIS
     Route: 042
     Dates: start: 20030408, end: 20170121
  2. PREDNISOLONE. [Concomitant]
     Active Substance: PREDNISOLONE
     Route: 048
  3. LANSOPRAZOLE. [Concomitant]
     Active Substance: LANSOPRAZOLE
     Route: 048
  4. INFLIXIMAB [Suspect]
     Active Substance: INFLIXIMAB
     Indication: RHEUMATOID ARTHRITIS
     Dosage: DOSAGE FORM: LYOPHILIZED POWDER
     Route: 042
     Dates: start: 20080312, end: 20130401
  5. CALCIUM CARBONATE. [Concomitant]
     Active Substance: CALCIUM CARBONATE
     Route: 048
  6. LEFLUNOMIDE. [Concomitant]
     Active Substance: LEFLUNOMIDE
     Dosage: DOSAGE FORM: UNSPECIFIED
     Route: 042
     Dates: start: 20050802, end: 20170121
  7. AMLODIPINE [Concomitant]
     Active Substance: AMLODIPINE BESYLATE
     Route: 048
  8. BECLOMETASONE DIPROPIONATE [Concomitant]
     Active Substance: BECLOMETHASONE DIPROPIONATE
     Dosage: DOSAGE FORM: INHALATION
     Route: 065
  9. BENZALKONIUM CHLORIDE/CHLORHEXIDINE HYDROCHLORIDE/ISOPROPYL MYRISTATE/PARAFFIN/LIQUID [Concomitant]
     Route: 061

REACTIONS (4)
  - JC virus infection [Unknown]
  - Immune reconstitution inflammatory syndrome [Unknown]
  - Basal cell carcinoma [Unknown]
  - Progressive multifocal leukoencephalopathy [Unknown]

NARRATIVE: CASE EVENT DATE: 201301
